FAERS Safety Report 5345677-1 (Version None)
Quarter: 2007Q2

REPORT INFORMATION
  Report Type: 
  Country: None (occurrence: None)
  Receive Date: 20070425
  Receipt Date: 20060425
  Transmission Date: 20071010
  Serious: Yes (Hospitalization)
  Sender: FDA-Public Use
  Company Number: 2006-141922-NL

PATIENT
  Age: 78 Year
  Sex: Male

DRUGS (1)
  1. ZEMURON [Suspect]
     Indication: NEUROMUSCULAR BLOCKADE
     Dosage: 50 MG ONCE
     Dates: start: 20060131, end: 20060131

REACTIONS (1)
  - ANAPHYLACTIC SHOCK [None]
